FAERS Safety Report 7198221-0 (Version None)
Quarter: 2010Q4

REPORT INFORMATION
  Report Type: 
  Country: None (occurrence: None)
  Receive Date: 20101227
  Receipt Date: 20101216
  Transmission Date: 20110411
  Serious: Yes (Hospitalization)
  Sender: FDA-Public Use
  Company Number: CL-JNJFOC-20101206124

PATIENT
  Age: 60 Year
  Sex: Female

DRUGS (6)
  1. LEVOFLOXACIN [Suspect]
     Indication: PNEUMONIA
     Route: 048
  2. CEFTRIAXONE [Suspect]
     Indication: PNEUMONIA
     Route: 065
  3. IPRATROPIUM/FENOTEROL [Suspect]
     Indication: PNEUMONIA
     Route: 065
  4. SPIRONOLACTONE [Concomitant]
     Route: 065
  5. DIGOXIN [Concomitant]
     Route: 065
  6. LOSARTAN [Concomitant]
     Route: 065

REACTIONS (5)
  - AORTIC VALVE DISEASE [None]
  - CARDIAC FAILURE CONGESTIVE [None]
  - MITRAL VALVE DISEASE [None]
  - RASH ERYTHEMATOUS [None]
  - TRICUSPID VALVE INCOMPETENCE [None]
